FAERS Safety Report 8587681-6 (Version None)
Quarter: 2012Q3

REPORT INFORMATION
  Report Type: 
  Country: None (occurrence: None)
  Receive Date: 20120813
  Receipt Date: 20120806
  Transmission Date: 20120928
  Serious: No
  Sender: FDA-Public Use
  Company Number: US-B.I. PHARMACEUTICALS,INC./RIDGEFIELD-2012-BP-17700BP

PATIENT
  Age: 58 Year
  Sex: Female

DRUGS (1)
  1. MICARDIS HCT [Suspect]
     Route: 048
     Dates: start: 20120101

REACTIONS (2)
  - NASAL DRYNESS [None]
  - EPISTAXIS [None]
